FAERS Safety Report 9102903 (Version 3)
Quarter: 2014Q1

REPORT INFORMATION
  Report Type: Spontaneous
  Country: US (occurrence: US)
  Receive Date: 20130219
  Receipt Date: 20140107
  Transmission Date: 20141002
  Serious: Yes (Death, Hospitalization, Other)
  Sender: FDA-Public Use
  Company Number: US-BAXTER-2013BAX005736

PATIENT
  Age: 86 Year
  Sex: Male

DRUGS (4)
  1. DIANEAL LOW CALCIUM [Suspect]
     Indication: PERITONEAL DIALYSIS
     Route: 033
  2. DIANEAL LOW CALCIUM [Suspect]
     Indication: PERITONEAL DIALYSIS
     Route: 033
     Dates: start: 201205, end: 20131026
  3. DIANEAL LOW CALCIUM (ULTRABAG) [Suspect]
     Indication: PERITONEAL DIALYSIS
     Dosage: 1 BAG
     Route: 033
     Dates: start: 201205, end: 20131026
  4. DIANEAL LOW CALCIUM (ULTRABAG) [Suspect]
     Indication: PERITONEAL DIALYSIS
     Route: 033

REACTIONS (13)
  - Cardiac failure [Fatal]
  - Renal failure [Fatal]
  - Blood potassium increased [Fatal]
  - Oesophageal disorder [Recovering/Resolving]
  - Hypophagia [Recovering/Resolving]
  - Weight decreased [Recovering/Resolving]
  - Cardiac failure congestive [Unknown]
  - Fungal infection [Unknown]
  - Cataract [Unknown]
  - Arrhythmia [Unknown]
  - Unresponsive to stimuli [Unknown]
  - Fluid retention [Unknown]
  - Fluid overload [Recovered/Resolved]
